FAERS Safety Report 20179694 (Version 1)
Quarter: 2021Q4

REPORT INFORMATION
  Report Type: Spontaneous
  Country: DE (occurrence: DE)
  Receive Date: 20211214
  Receipt Date: 20211214
  Transmission Date: 20220303
  Serious: Yes (Other)
  Sender: FDA-Public Use
  Company Number: None

PATIENT
  Age: 59 Year
  Sex: Female
  Weight: 68 kg

DRUGS (4)
  1. CARBOPLATIN [Suspect]
     Active Substance: CARBOPLATIN
     Indication: Ovarian cancer
     Dosage: GIVEN FROM APPROX. 9 A.M. TO 9.45 A.M. VOLUME / SOLVENT GLUCOSE 500ML, NACL SLOW START WITH 75ML FOR
     Route: 042
     Dates: start: 20211122
  2. CARBOPLATIN [Suspect]
     Active Substance: CARBOPLATIN
     Dosage: INTERVAL CYCLIC
     Route: 042
     Dates: start: 20210601, end: 20211026
  3. DIMETHINDENE [Concomitant]
     Active Substance: DIMETHINDENE
     Dosage: 5 ML
     Route: 040
  4. DEXAMETHASONE [Concomitant]
     Active Substance: DEXAMETHASONE
     Dosage: 8 MG

REACTIONS (7)
  - Loss of consciousness [Unknown]
  - Hypotension [Unknown]
  - Hypersensitivity [Unknown]
  - Feeling hot [Unknown]
  - Erythema [Unknown]
  - Erythema [Unknown]
  - Cold sweat [Unknown]

NARRATIVE: CASE EVENT DATE: 20211122
